FAERS Safety Report 7796294-5 (Version None)
Quarter: 2011Q4

REPORT INFORMATION
  Report Type: 
  Country: None (occurrence: None)
  Receive Date: 20111005
  Receipt Date: 20110930
  Transmission Date: 20120403
  Serious: Yes (Life-Threatening, Hospitalization, Other)
  Sender: FDA-Public Use
  Company Number: DE-BRISTOL-MYERS SQUIBB COMPANY-16118515

PATIENT
  Age: 76 Year
  Sex: Female
  Weight: 88 kg

DRUGS (1)
  1. TAXOL [Suspect]
     Indication: OVARIAN CANCER
     Dosage: 1DF = 100-160MG NERALY 2 PER MONTH (CUMULATIVE DOSE 2120MG)
     Route: 042
     Dates: start: 20110314, end: 20110704

REACTIONS (1)
  - RENAL FAILURE ACUTE [None]
